FAERS Safety Report 11358690 (Version 1)
Quarter: 2015Q3

REPORT INFORMATION
  Report Type: Spontaneous
  Country: US (occurrence: US)
  Receive Date: 20150803
  Receipt Date: 20150803
  Transmission Date: 20151125
  Serious: No
  Sender: FDA-Public Use
  Company Number: US-ELI_LILLY_AND_COMPANY-US201304004422

PATIENT
  Sex: Female

DRUGS (2)
  1. STRATTERA [Suspect]
     Active Substance: ATOMOXETINE HYDROCHLORIDE
     Dosage: 80 MG, QD
     Route: 065
     Dates: end: 201210
  2. STRATTERA [Suspect]
     Active Substance: ATOMOXETINE HYDROCHLORIDE
     Dosage: 80 MG, QD
     Route: 065
     Dates: start: 201210, end: 20130408

REACTIONS (12)
  - Memory impairment [Unknown]
  - Incoherent [Unknown]
  - Impaired work ability [Unknown]
  - Poor quality sleep [Unknown]
  - Impaired work ability [Unknown]
  - Lethargy [Unknown]
  - Asthenia [Unknown]
  - Decreased appetite [Unknown]
  - Decreased appetite [Unknown]
  - Abnormal dreams [Unknown]
  - Apathy [Unknown]
  - Drug withdrawal syndrome [Unknown]

NARRATIVE: CASE EVENT DATE: 201210
